FAERS Safety Report 13377300 (Version 1)
Quarter: 2017Q1

REPORT INFORMATION
  Report Type: Spontaneous
  Country: JP (occurrence: JP)
  Receive Date: 20170328
  Receipt Date: 20170328
  Transmission Date: 20170429
  Serious: Yes (Life-Threatening, Hospitalization, Other)
  Sender: FDA-Public Use
  Company Number: JP-VALIDUS PHARMACEUTICALS LLC-JP-2016VAL000961

PATIENT
  Age: 18 Year
  Sex: Female

DRUGS (7)
  1. FUROSEMIDE. [Suspect]
     Active Substance: FUROSEMIDE
     Indication: DIURETIC THERAPY
     Dosage: UNK
     Route: 065
     Dates: start: 201209
  2. BORTEZOMIB [Suspect]
     Active Substance: BORTEZOMIB
     Indication: B PRECURSOR TYPE ACUTE LEUKAEMIA
     Dosage: 1.3 MG/M2, QD
     Route: 065
     Dates: start: 20120919
  3. PREDNISOLONE. [Suspect]
     Active Substance: PREDNISOLONE
     Indication: B PRECURSOR TYPE ACUTE LEUKAEMIA
     Dosage: 30 MG/M2, QD
     Route: 065
     Dates: start: 20120919
  4. VINCRISTINE                        /00078802/ [Suspect]
     Active Substance: VINCRISTINE
     Indication: B PRECURSOR TYPE ACUTE LEUKAEMIA
     Dosage: 1.5 MG/M2, QD
     Route: 065
     Dates: start: 20120919
  5. I.V. SOLUTIONS [Concomitant]
     Active Substance: UNSPECIFIED INGREDIENT
     Indication: PRODUCT USED FOR UNKNOWN INDICATION
     Dosage: UNK
     Dates: start: 2012
  6. INSULIN [Concomitant]
     Active Substance: INSULIN NOS
     Indication: PRODUCT USED FOR UNKNOWN INDICATION
     Dosage: UNK
     Dates: start: 2012
  7. ASPARAGINASE [Suspect]
     Active Substance: ASPARAGINASE
     Indication: B PRECURSOR TYPE ACUTE LEUKAEMIA
     Dosage: UNK UNK, QD
     Route: 065
     Dates: start: 20120919

REACTIONS (6)
  - Gastrointestinal oedema [Recovered/Resolved]
  - Intestinal ischaemia [Recovered/Resolved]
  - Gastrointestinal necrosis [Recovered/Resolved]
  - Abdominal pain [Recovered/Resolved]
  - Neutropenia [Unknown]
  - Ascites [Recovered/Resolved]

NARRATIVE: CASE EVENT DATE: 2012
